FAERS Safety Report 9912079 (Version 1)
Quarter: 2014Q1

REPORT INFORMATION
  Report Type: Report from Study
  Country: US (occurrence: US)
  Receive Date: 20140219
  Receipt Date: 20140219
  Transmission Date: 20141002
  Serious: Yes (Death)
  Sender: FDA-Public Use
  Company Number: US-ROCHE-1328015

PATIENT
  Sex: Male

DRUGS (6)
  1. AVASTIN [Suspect]
     Indication: SOFT TISSUE CANCER
     Route: 042
     Dates: start: 20120530, end: 20120530
  2. AVASTIN [Suspect]
     Indication: SOFT TISSUE CANCER
  3. TOPOTECAN [Concomitant]
     Route: 042
     Dates: start: 20120530
  4. CYCLOPHOSPHAMIDE [Concomitant]
     Route: 042
  5. PALONOSETRON [Concomitant]
     Route: 042
  6. VINCRISTINE [Concomitant]

REACTIONS (2)
  - Death [Fatal]
  - Off label use [Unknown]
